FAERS Safety Report 10077046 (Version 1)
Quarter: 2014Q2

REPORT INFORMATION
  Report Type: Spontaneous
  Country: US (occurrence: US)
  Receive Date: 20140414
  Receipt Date: 20140414
  Transmission Date: 20141212
  Serious: No
  Sender: FDA-Public Use
  Company Number: US-B.I. PHARMACEUTICALS,INC./RIDGEFIELD-2014-BI-15844BP

PATIENT
  Sex: Male
  Weight: 79 kg

DRUGS (11)
  1. TRADJENTA [Suspect]
     Indication: TYPE 2 DIABETES MELLITUS
     Dosage: 5 MG
     Route: 048
     Dates: start: 201401
  2. ZENPEP [Concomitant]
     Indication: GASTRIC DISORDER
     Dosage: 6 ANZ
     Route: 048
  3. ZENPEP [Concomitant]
     Indication: ILL-DEFINED DISORDER
     Dosage: 1 ANZ
     Route: 048
  4. LIPITOR [Concomitant]
     Indication: BLOOD CHOLESTEROL INCREASED
     Dosage: 10 MG
     Route: 048
  5. LASIX [Concomitant]
     Indication: FLUID RETENTION
     Dosage: 20 MG
     Route: 048
  6. FLOMAX [Concomitant]
     Indication: PROSTATOMEGALY
     Dosage: 0.4 MG
     Route: 048
  7. PREVACID [Concomitant]
     Indication: BARRETT^S OESOPHAGUS
     Dosage: 30 MG
     Route: 048
  8. TRAMODOL [Concomitant]
     Indication: PAIN
     Route: 048
  9. ISOSORBIDE MONONITRATE [Concomitant]
     Indication: CARDIAC DISORDER
     Dosage: 30 MG
     Route: 048
  10. LOPRESSOR [Concomitant]
     Indication: HYPERTENSION
     Dosage: 50 MG
     Route: 048
  11. GLIBURIDE [Concomitant]
     Indication: TYPE 2 DIABETES MELLITUS
     Dosage: 2 MG
     Route: 048

REACTIONS (4)
  - Swelling face [Recovered/Resolved]
  - Blood glucose increased [Not Recovered/Not Resolved]
  - Peripheral swelling [Recovered/Resolved]
  - Glycosylated haemoglobin decreased [Not Recovered/Not Resolved]
